FAERS Safety Report 10975791 (Version 5)
Quarter: 2018Q4

REPORT INFORMATION
  Report Type: Spontaneous
  Country: US (occurrence: US)
  Receive Date: 20150401
  Receipt Date: 20181126
  Transmission Date: 20190204
  Serious: Yes (Hospitalization, Other)
  Sender: FDA-Public Use
  Company Number: US-PFIZER INC-2015113668

PATIENT
  Age: 61 Year
  Sex: Female

DRUGS (1)
  1. DAYPRO [Suspect]
     Active Substance: OXAPROZIN
     Indication: FIBROMYALGIA
     Dosage: UNK
     Dates: start: 199803, end: 1999

REACTIONS (4)
  - Stevens-Johnson syndrome [Not Recovered/Not Resolved]
  - Peripheral nerve injury [Unknown]
  - Product use in unapproved indication [Unknown]
  - Torticollis [Unknown]

NARRATIVE: CASE EVENT DATE: 199803
